FAERS Safety Report 4556427-0 (Version None)
Quarter: 2005Q1

REPORT INFORMATION
  Report Type: 
  Country: None (occurrence: None)
  Receive Date: 20050114
  Receipt Date: 20050105
  Transmission Date: 20050727
  Serious: Yes (Hospitalization, Other)
  Sender: FDA-Public Use
  Company Number: 2005005674

PATIENT
  Age: 49 Year
  Sex: Male

DRUGS (3)
  1. LIPITOR [Suspect]
     Indication: ILL-DEFINED DISORDER
     Dosage: 20 MG (20 MG, 1 IN 1 D), ORAL
     Route: 048
     Dates: end: 20041110
  2. INSULIN [Suspect]
     Indication: DIABETES MELLITUS
     Dates: start: 20040101
  3. ORAL ANTIDIABETICS (ORAL ANTIDIABETICS) [Concomitant]

REACTIONS (8)
  - BLOOD GLUCOSE FLUCTUATION [None]
  - CLOSED HEAD INJURY [None]
  - DIABETES MELLITUS INADEQUATE CONTROL [None]
  - FALL [None]
  - GAIT DISTURBANCE [None]
  - RASH [None]
  - RHABDOMYOLYSIS [None]
  - STENT PLACEMENT [None]
